FAERS Safety Report 4952296-5 (Version None)
Quarter: 2006Q1

REPORT INFORMATION
  Report Type: 
  Country: None (occurrence: None)
  Receive Date: 20060131
  Receipt Date: 20050421
  Transmission Date: 20060701
  Serious: Yes (Other)
  Sender: FDA-Public Use
  Company Number: WAES 0504USA04009

PATIENT
  Sex: Female

DRUGS (2)
  1. INVANZ [Suspect]
     Indication: INFECTION
     Dosage: 500  MG DAILY IV
     Route: 042
  2. ANTIMICROBIAL [Concomitant]

REACTIONS (1)
  - CONVULSION [None]
